FAERS Safety Report 8767572 (Version 1)
Quarter: 2012Q4

REPORT INFORMATION
  Report Type: 
  Country: BR (occurrence: BR)
  Receive Date: 20120904
  Receipt Date: 20120904
  Transmission Date: 20130627
  Serious: Yes (Other)
  Sender: FDA-Public Use
  Company Number: PHHY2012BR076571

PATIENT
  Age: 68 Year
  Sex: Male

DRUGS (7)
  1. GALVUS MET [Suspect]
     Dosage: 2 DF (1000/50 mg) Per day
  2. DIOVAN HCT [Suspect]
     Dosage: 1 DF (160/12.5 mg) Per day
  3. ATENOLOL [Concomitant]
     Dosage: 25 mg, Per day
  4. ATENOLOL [Concomitant]
     Dosage: 50 mg, UNK
  5. CRESTOR [Concomitant]
     Dosage: 10 mg, Per day
  6. ACETYLSALICYLIC ACID [Concomitant]
     Dosage: 100 mg, UNK
  7. MONOCORDIL [Concomitant]
     Dosage: 2 DF (40 mg) Per day

REACTIONS (6)
  - Coronary artery stenosis [Not Recovered/Not Resolved]
  - Angina pectoris [Not Recovered/Not Resolved]
  - Glycosylated haemoglobin increased [Not Recovered/Not Resolved]
  - Blood glucose increased [Not Recovered/Not Resolved]
  - Syncope [None]
  - Hypoglycaemia [None]
